FAERS Safety Report 4860439-7 (Version None)
Quarter: 2005Q4

REPORT INFORMATION
  Report Type: 
  Country: None (occurrence: None)
  Receive Date: 20051215
  Receipt Date: 20051205
  Transmission Date: 20060501
  Serious: Yes (Hospitalization, Other)
  Sender: FDA-Public Use
  Company Number: 2005164106

PATIENT
  Sex: Female
  Weight: 58.9676 kg

DRUGS (4)
  1. CELEBREX [Suspect]
     Indication: ARTHRALGIA
     Dosage: 200 MG (200 MG, 1 IN 1 D); UNKNOWN
  2. ANASTROZOLE [Concomitant]
  3. ZIAC [Concomitant]
  4. VITAMINS [Concomitant]

REACTIONS (6)
  - BODY HEIGHT DECREASED [None]
  - BONE DISORDER [None]
  - HYPERTENSIVE HEART DISEASE [None]
  - POST PROCEDURAL COMPLICATION [None]
  - SURGICAL PROCEDURE REPEATED [None]
  - UPPER LIMB FRACTURE [None]
